FAERS Safety Report 8969490 (Version 1)
Quarter: 2012Q4

REPORT INFORMATION
  Report Type: 
  Country: US (occurrence: US)
  Receive Date: 20121218
  Receipt Date: 20121218
  Transmission Date: 20130627
  Serious: Yes (Other)
  Sender: FDA-Public Use
  Company Number: US-BRISTOL-MYERS SQUIBB COMPANY-16257792

PATIENT
  Age: 3 None
  Sex: Female
  Weight: 99.77 kg

DRUGS (3)
  1. ABILIFY [Suspect]
     Dates: start: 201107
  2. GABAPENTIN [Concomitant]
  3. ZOLOFT [Concomitant]

REACTIONS (1)
  - Weight increased [Unknown]
